FAERS Safety Report 6411736-5 (Version None)
Quarter: 2009Q4

REPORT INFORMATION
  Report Type: 
  Country: None (occurrence: None)
  Receive Date: 20091020
  Receipt Date: 20051213
  Transmission Date: 20100525
  Serious: Yes (Hospitalization)
  Sender: FDA-Public Use
  Company Number: 2009009241

PATIENT
  Age: 47 Year
  Sex: Male

DRUGS (4)
  1. ACTIQ [Suspect]
     Indication: CANCER PAIN
     Dosage: BU
     Route: 002
  2. LISINOPRIL [Concomitant]
  3. DILAUDID [Concomitant]
  4. ATIVAN [Concomitant]

REACTIONS (3)
  - DEEP VEIN THROMBOSIS [None]
  - HAEMATOMA [None]
  - LOBAR PNEUMONIA [None]
